FAERS Safety Report 11381564 (Version 5)
Quarter: 2015Q3

REPORT INFORMATION
  Report Type: Report from Study
  Country: US (occurrence: US)
  Receive Date: 20150814
  Receipt Date: 20150902
  Transmission Date: 20151125
  Serious: Yes (Hospitalization)
  Sender: FDA-Public Use
  Company Number: US-PFIZER INC-2015243190

PATIENT
  Age: 63 Year
  Sex: Male
  Weight: 152 kg

DRUGS (22)
  1. LORATADINE. [Concomitant]
     Active Substance: LORATADINE
     Indication: RHINITIS ALLERGIC
     Dosage: 10 MG, PRN X1/DAY
     Route: 048
     Dates: start: 20150506
  2. BLINDED BOCOCIZUMAB [Suspect]
     Active Substance: BOCOCIZUMAB
     Indication: HYPERLIPIDAEMIA
     Dosage: EVERY 2 WEEKS
     Route: 058
     Dates: start: 20150211, end: 20150603
  3. BLINDED PF-04950615 [Suspect]
     Active Substance: BOCOCIZUMAB
     Indication: HYPERLIPIDAEMIA
     Dosage: EVERY 2 WEEKS
     Route: 058
     Dates: start: 20150211, end: 20150603
  4. PLACEBO [Suspect]
     Active Substance: UNSPECIFIED INGREDIENT
     Indication: HYPERLIPIDAEMIA
     Dosage: EVERY 2 WEEKS
     Route: 058
     Dates: start: 20150211, end: 20150603
  5. NITROGLYCERIN. [Suspect]
     Active Substance: NITROGLYCERIN
     Dosage: 0.4 MG, AS NEEDED, SINGLE
     Route: 060
     Dates: start: 20150716, end: 20150716
  6. FLOMAX [Concomitant]
     Active Substance: TAMSULOSIN HYDROCHLORIDE
     Indication: BENIGN PROSTATIC HYPERPLASIA
     Dosage: 0.4 MG, 1X/DAY
     Route: 048
     Dates: start: 20150428
  7. RAMIPRIL. [Suspect]
     Active Substance: RAMIPRIL
     Indication: HYPERTENSION
     Dosage: 10 MG, 1X/DAY
     Route: 048
     Dates: start: 20120217, end: 20150716
  8. SPIRONOLACTONE. [Suspect]
     Active Substance: SPIRONOLACTONE
     Indication: CARDIOMYOPATHY
     Dosage: 25 MG, 1X/DAY
     Route: 048
     Dates: start: 20150603, end: 20150716
  9. FLUTICASONE [Concomitant]
     Active Substance: FLUTICASONE\FLUTICASONE PROPIONATE
     Indication: RHINITIS ALLERGIC
     Dosage: 50 ?G, PRN, ONE SPRAY IN EACH NOSTRIL
     Route: 045
     Dates: start: 20150105
  10. FUROSEMIDE. [Concomitant]
     Active Substance: FUROSEMIDE
     Indication: OEDEMA
     Dosage: 40 MG, 1X/DAY
     Route: 048
     Dates: start: 20120217, end: 20150716
  11. BABY ASPIRIN [Concomitant]
     Active Substance: ASPIRIN
     Dosage: 4 - 81 MG TABLETS, ONCE
     Route: 048
     Dates: start: 20150716, end: 20150716
  12. WARFARIN [Concomitant]
     Active Substance: WARFARIN
     Dosage: 5 MG ON TUESDAY, THURSDAY, SATURDAY, SUNDAY
     Route: 048
     Dates: start: 20150403
  13. GABAPENTIN. [Concomitant]
     Active Substance: GABAPENTIN
     Indication: NEUROPATHY PERIPHERAL
     Dosage: 300 MG, 2X/DAY
     Route: 048
     Dates: start: 20130321, end: 20150716
  14. ASPIRIN. [Concomitant]
     Active Substance: ASPIRIN
     Indication: CARDIOVASCULAR EVENT PROPHYLAXIS
     Dosage: 81 MG, 1X/DAY
     Route: 048
     Dates: start: 20140128
  15. CARVEDILOL. [Concomitant]
     Active Substance: CARVEDILOL
     Indication: HYPERTENSION
     Dosage: 6.25 MG, 2X/DAY
     Route: 048
     Dates: start: 20150710, end: 20150727
  16. BLINDED PF-04950615 [Suspect]
     Active Substance: BOCOCIZUMAB
     Indication: HYPERLIPIDAEMIA
     Dosage: EVERY 2 WEEKS
     Route: 058
     Dates: start: 20150211, end: 20150603
  17. ALBUTEROL SULFATE. [Concomitant]
     Active Substance: ALBUTEROL SULFATE
     Indication: CHRONIC OBSTRUCTIVE PULMONARY DISEASE
     Dosage: 90 ?G, ONE PUFF AS NEEDED
     Route: 055
     Dates: start: 20150105
  18. WARFARIN [Concomitant]
     Active Substance: WARFARIN
     Indication: ATRIAL FIBRILLATION
     Dosage: 10 MG ON MONDAY, WEDNESDAY, FRIDAY
     Route: 048
     Dates: start: 20150403
  19. CETIRIZINE HYDROCHLORIDE. [Concomitant]
     Active Substance: CETIRIZINE HYDROCHLORIDE
     Indication: RHINITIS ALLERGIC
     Dosage: 10 MG, AS NEEDED DAILY
     Route: 048
     Dates: start: 20150428, end: 20150716
  20. PLACEBO [Suspect]
     Active Substance: UNSPECIFIED INGREDIENT
     Indication: HYPERLIPIDAEMIA
     Dosage: EVERY 2 WEEKS
     Route: 058
     Dates: start: 20150211, end: 20150603
  21. ATORVASTATIN [Concomitant]
     Active Substance: ATORVASTATIN
     Indication: DYSLIPIDAEMIA
     Dosage: 80 MG, 1X/DAY, EVERY HS
     Route: 048
     Dates: start: 20141020
  22. BLINDED BOCOCIZUMAB [Suspect]
     Active Substance: BOCOCIZUMAB
     Indication: HYPERLIPIDAEMIA
     Dosage: EVERY 2 WEEKS
     Route: 058
     Dates: start: 20150211, end: 20150603

REACTIONS (3)
  - Acute kidney injury [Recovered/Resolved]
  - Dehydration [Recovered/Resolved]
  - Hypotension [Recovered/Resolved]

NARRATIVE: CASE EVENT DATE: 20150715
